FAERS Safety Report 12085762 (Version 1)
Quarter: 2016Q1

REPORT INFORMATION
  Report Type: Spontaneous
  Country: US (occurrence: US)
  Receive Date: 20160217
  Receipt Date: 20160217
  Transmission Date: 20160526
  Serious: Yes (Hospitalization)
  Sender: FDA-Public Use
  Company Number: US-GILEAD-2016-0197705

PATIENT
  Sex: Female

DRUGS (2)
  1. ZYDELIG [Suspect]
     Active Substance: IDELALISIB
     Indication: PRODUCT USED FOR UNKNOWN INDICATION
     Dosage: UNK
     Route: 065
  2. ZYDELIG [Suspect]
     Active Substance: IDELALISIB
     Dosage: UNK
     Route: 065

REACTIONS (6)
  - Mouth haemorrhage [Unknown]
  - Epistaxis [Unknown]
  - Blood urine present [Unknown]
  - Colitis [Unknown]
  - Haematochezia [Unknown]
  - Gastric disorder [Unknown]
